FAERS Safety Report 8233037-5 (Version None)
Quarter: 2012Q1

REPORT INFORMATION
  Report Type: 
  Country: None (occurrence: None)
  Receive Date: 20120326
  Receipt Date: 20120316
  Transmission Date: 20120608
  Serious: Yes (Other)
  Sender: FDA-Public Use
  Company Number: US-BIOGENIDEC-2012BI009747

PATIENT
  Sex: Female

DRUGS (4)
  1. NAPROXEN [Concomitant]
     Indication: PREMEDICATION
     Dates: end: 20100101
  2. TYLENOL [Concomitant]
     Indication: PREMEDICATION
     Dates: start: 20100101
  3. AVONEX [Suspect]
     Route: 030
     Dates: start: 20030101
  4. AVONEX [Suspect]
     Indication: MULTIPLE SCLEROSIS
     Route: 030
     Dates: start: 20011228, end: 20030101

REACTIONS (6)
  - GALLBLADDER DISORDER [None]
  - GASTRIC ULCER [None]
  - CROHN'S DISEASE [None]
  - PROCEDURAL PAIN [None]
  - FATIGUE [None]
  - POST PROCEDURAL COMPLICATION [None]
